FAERS Safety Report 5500216-7 (Version None)
Quarter: 2007Q4

REPORT INFORMATION
  Report Type: 
  Country: None (occurrence: None)
  Receive Date: 20071025
  Receipt Date: 20071011
  Transmission Date: 20080405
  Serious: Yes (Hospitalization)
  Sender: FDA-Public Use
  Company Number: S07-USA-05456-01

PATIENT
  Age: 55 Year
  Sex: Female

DRUGS (7)
  1. LEXAPRO [Suspect]
     Indication: ANXIETY
     Dosage: 10 MG QD PO
     Route: 048
     Dates: start: 20061201, end: 20071009
  2. LEXAPRO [Suspect]
     Indication: DEPRESSION
     Dosage: 10 MG QD PO
     Route: 048
     Dates: start: 20061201, end: 20071009
  3. DELSYM [Suspect]
     Indication: COUGH
     Dates: start: 20070906, end: 20070929
  4. LEVOTHYROXINE SODIUM [Concomitant]
  5. ATACAND [Concomitant]
  6. HYDROCHLOROTHIAZIDE [Concomitant]
  7. VYTORIN [Concomitant]

REACTIONS (9)
  - DIZZINESS [None]
  - DRUG INTERACTION [None]
  - DYSPNOEA [None]
  - FEELING ABNORMAL [None]
  - INTERVERTEBRAL DISC DEGENERATION [None]
  - SEROTONIN SYNDROME [None]
  - SINUSITIS [None]
  - SWOLLEN TONGUE [None]
  - TINNITUS [None]
